FAERS Safety Report 9162764 (Version 1)
Quarter: 2013Q1

REPORT INFORMATION
  Report Type: Spontaneous
  Country: AT (occurrence: AT)
  Receive Date: 20130314
  Receipt Date: 20130314
  Transmission Date: 20140127
  Serious: Yes (Other)
  Sender: FDA-Public Use
  Company Number: AT-ELI_LILLY_AND_COMPANY-AT201303002031

PATIENT
  Age: 45 Year
  Sex: Female

DRUGS (4)
  1. DULOXETINE HYDROCHLORIDE [Suspect]
     Dosage: 30 MG, QD
     Dates: start: 2011
  2. STABLON [Concomitant]
     Dosage: UNK
     Dates: start: 2011
  3. LAMICTAL [Concomitant]
     Dosage: UNK
     Dates: start: 2011
  4. DOMINAL [Concomitant]
     Dosage: UNK
     Dates: start: 2011

REACTIONS (4)
  - Loss of consciousness [Recovered/Resolved]
  - Nausea [Recovered/Resolved]
  - Vertigo [Recovered/Resolved]
  - Headache [Recovered/Resolved]
